FAERS Safety Report 14347214 (Version 3)
Quarter: 2018Q2

REPORT INFORMATION
  Report Type: Spontaneous
  Country: SE (occurrence: SE)
  Receive Date: 20180103
  Receipt Date: 20180522
  Transmission Date: 20180711
  Serious: Yes (Hospitalization)
  Sender: FDA-Public Use
  Company Number: SE-VERTEX PHARMACEUTICALS-2017-007109

PATIENT
  Sex: Male

DRUGS (35)
  1. CREON [Concomitant]
     Active Substance: PANCRELIPASE AMYLASE\PANCRELIPASE LIPASE\PANCRELIPASE PROTEASE
     Dosage: 6-7 CAPSULES PER MEAL
  2. TRACEL [Concomitant]
  3. ORKAMBI [Suspect]
     Active Substance: IVACAFTOR\LUMACAFTOR
     Indication: CYSTIC FIBROSIS
     Dosage: 2 DOSAGE FORM, BID
     Route: 048
     Dates: start: 20171215, end: 20180426
  4. DEVITRE [Concomitant]
     Active Substance: CHOLECALCIFEROL
     Indication: VITAMIN D DEFICIENCY
     Dosage: 2 TABLETS, BID
  5. E-VIMIN [Concomitant]
     Dosage: 2 CAPSULES AT 08 AM AND 4 CAPSULES AT 08 PM, DAILY
  6. CYKLOKAPRON [Concomitant]
     Active Substance: TRANEXAMIC ACID
     Indication: HAEMOPTYSIS
  7. RINGER ACETATE [Concomitant]
     Active Substance: CALCIUM CHLORIDE\POTASSIUM CHLORIDE\SODIUM ACETATE
     Indication: FASTING
     Dosage: 1000 MILLILITER DAILY AT 2 PM
     Route: 042
  8. NEXIUM [Interacting]
     Active Substance: ESOMEPRAZOLE MAGNESIUM
     Indication: PRODUCT USED FOR UNKNOWN INDICATION
     Dosage: UNK
     Route: 065
  9. SERTRALINE [Concomitant]
     Active Substance: SERTRALINE HYDROCHLORIDE
     Dosage: 2 TABLETS, QD AT 08 AM
  10. URSOFALK [Concomitant]
     Active Substance: URSODIOL
     Dosage: 2 TABLETS AT 8 AM AND 1 TABLET AT 5 PM DAILY
  11. ALVEDON [Concomitant]
     Active Substance: ACETAMINOPHEN
     Indication: PAIN
     Dosage: 2 TABLETS, PRN
  12. PULMICORT TURBUHALER [Concomitant]
     Active Substance: BUDESONIDE
     Dosage: 1 DOSE (400 MICROGRAM) AT 08 AM, 1 DOSE (400 MICROGRAM) AT 08 PM
  13. PIPERACILLIN/TAZOBACTAM [Concomitant]
     Active Substance: PIPERACILLIN SODIUM\TAZOBACTAM SODIUM
     Indication: CYSTIC FIBROSIS
     Dosage: 4 GRAMS AT 00 AM, AT 08 AM AND AT 04 PM DAILY
  14. OLANZAPIN SANDOZ [Concomitant]
     Active Substance: OLANZAPINE
     Dosage: 2.5 MG
  15. AZITHROMYCIN ANHYDROUS. [Concomitant]
     Active Substance: AZITHROMYCIN ANHYDROUS
     Dosage: 1 TABLET, QD AT 08 AM
  16. VENTOLIN [Concomitant]
     Active Substance: ALBUTEROL SULFATE
  17. LORATADIN [Concomitant]
     Active Substance: LORATADINE
     Indication: HYPERSENSITIVITY
     Dosage: TAKE IN SUMMER
  18. ESOMEPRAZOL                        /01479301/ [Concomitant]
     Active Substance: ESOMEPRAZOLE
     Indication: GASTROINTESTINAL HAEMORRHAGE
  19. BISOLVON [Concomitant]
     Active Substance: BROMHEXINE HYDROCHLORIDE
     Dosage: 3 TABLETS, BID (AT 08 AM AND 08 PM)
  20. ADDAVEN [Concomitant]
     Active Substance: ELECTROLYTES NOS\MINERALS
     Dosage: 10 MILLILITER AT 10 PM DAILY
  21. MEDIC [Concomitant]
     Indication: HAEMOPTYSIS
     Dosage: 2 TABLETS (10 MG EACH) AT 5 PM, QD
  22. VITALIPID ADULT [Concomitant]
     Active Substance: ERGOCALCIFEROL\PHYTONADIONE\RETINOL\TOCOPHEROL
     Dosage: 10 MILLILITER AT 10 PM DAILY
  23. NEXIUM [Interacting]
     Active Substance: ESOMEPRAZOLE MAGNESIUM
     Dosage: DOSE INCREASED
     Route: 065
  24. MIRTAZAPIN ACTAVIS [Concomitant]
     Active Substance: MIRTAZAPINE
     Indication: DEPRESSION
     Dosage: 3 TABLETS AT NIGHT TIME
  25. DUROFERON [Concomitant]
     Active Substance: FERROUS SULFATE
     Indication: BLOOD IRON DECREASED
  26. SMOFKABIVEN [Concomitant]
     Active Substance: AMINO ACIDS\DEXTROSE\ELECTROLYTES NOS\SOYBEAN OIL
     Dosage: 1 AMP.
  27. TADIM [Concomitant]
     Active Substance: COLISTIMETHATE SODIUM
     Indication: INFECTION
     Dosage: 2 UNITS AT 00 AM, AT 08 AM, AT 04 PM DAILY
  28. CAYSTON [Concomitant]
     Active Substance: AZTREONAM
  29. CALCICHEW-D3 [Concomitant]
     Active Substance: CALCIUM\CHOLECALCIFEROL
     Dosage: 3 TABLETS, BID DAILY (IN WINTER TIME 2 TABLETS DAILY)
  30. SOLUVIT                            /01591701/ [Concomitant]
     Dosage: 1 AMPOULE DAILY AT 10 PM
  31. STESOLID [Concomitant]
     Active Substance: DIAZEPAM
     Indication: ANXIETY
     Dosage: 1 TABLET AT 08 AM, QD
  32. PRIMPERAN [Concomitant]
     Active Substance: METOCLOPRAMIDE HYDROCHLORIDE
     Indication: NAUSEA
     Dosage: 1 TABLET BEFORE MEALS, PRN
  33. OXIS TURBOHALER [Concomitant]
     Dosage: 1 DOSE AT 08 AM AND 1 AT 08 PM, BID
  34. ACETYLCYSTEINE. [Concomitant]
     Active Substance: ACETYLCYSTEINE
     Dosage: 2 DOSAGE FORM, BID (AT 08 AM AND 08 PM)
  35. VITALIPID                          /01314101/ [Concomitant]
     Active Substance: ERGOCALCIFEROL\PHYTONADIONE\RETINOL\TOCOPHEROL

REACTIONS (9)
  - Gastrooesophageal reflux disease [Unknown]
  - Blood pressure increased [Unknown]
  - Drug interaction [Unknown]
  - Chest discomfort [Unknown]
  - Respiratory tract haemorrhage [Unknown]
  - Dyspnoea [Not Recovered/Not Resolved]
  - Breast pain [Not Recovered/Not Resolved]
  - Rash [Unknown]
  - Hospitalisation [Unknown]

NARRATIVE: CASE EVENT DATE: 2017
